FAERS Safety Report 21694378 (Version 2)
Quarter: 2023Q1

REPORT INFORMATION
  Report Type: Spontaneous
  Country: CA (occurrence: CA)
  Receive Date: 20221207
  Receipt Date: 20230322
  Transmission Date: 20230417
  Serious: Yes (Death, Other)
  Sender: FDA-Public Use
  Company Number: CA-SA-SAC20221206000395

PATIENT
  Age: 37 Year
  Sex: Male

DRUGS (3)
  1. THYMOGLOBULIN [Suspect]
     Active Substance: LAPINE T-LYMPHOCYTE IMMUNE GLOBULIN
     Indication: Bone marrow conditioning regimen
     Dosage: 1.25 MG/KG, QD
     Route: 042
  2. BUSULFAN [Suspect]
     Active Substance: BUSULFAN
     Indication: Bone marrow conditioning regimen
     Dosage: UNK
     Route: 042
  3. CYCLOPHOSPHAMIDE [Suspect]
     Active Substance: CYCLOPHOSPHAMIDE
     Indication: Bone marrow conditioning regimen
     Dosage: 50 MG/KG, QD
     Route: 042

REACTIONS (11)
  - Cardiac tamponade [Fatal]
  - Multiple organ dysfunction syndrome [Fatal]
  - Upper gastrointestinal haemorrhage [Fatal]
  - Acute kidney injury [Fatal]
  - Respiratory failure [Fatal]
  - Candida infection [Fatal]
  - Cellulitis [Fatal]
  - Cytomegalovirus infection [Fatal]
  - Enterococcal infection [Fatal]
  - Sepsis [Fatal]
  - Escherichia test positive [Fatal]
